FAERS Safety Report 16968377 (Version 2)
Quarter: 2019Q4

REPORT INFORMATION
  Report Type: Spontaneous
  Country: BE (occurrence: BE)
  Receive Date: 20191028
  Receipt Date: 20191111
  Transmission Date: 20200122
  Serious: Yes (Other)
  Sender: FDA-Public Use
  Company Number: BE-CELLTRION INC.-2019BE023520

PATIENT

DRUGS (5)
  1. INFLIXIMAB (UNKNOWN) [Suspect]
     Active Substance: INFLIXIMAB
     Dosage: UNK ((AFTER TEN INFUSIONS OF INFLIXIMAB) INFUSION INTERVALS WERE AGAIN SHORTENED TO SIX WEEKS)
  2. INFLIXIMAB (UNKNOWN) [Suspect]
     Active Substance: INFLIXIMAB
     Dosage: UNK (CONTINUED EVERY FIVE TO EIGHT WEEKS DEPENDING ON THE PATIENT^S SYMPTOMS)
  3. INFLIXIMAB (UNKNOWN) [Suspect]
     Active Substance: INFLIXIMAB
     Indication: CROHN^S DISEASE
     Dosage: UNK (INFUSION, MONOTHERAPY EVERY EIGHT WEEKS)
  4. INFLIXIMAB (UNKNOWN) [Suspect]
     Active Substance: INFLIXIMAB
     Dosage: UNK (AFTER SEVEN INFUSIONS OF INFLIXIMAB, THE INTERVAL WAS AGAIN EXTENDED TO EIGHT WEEKS)
  5. INFLIXIMAB (UNKNOWN) [Suspect]
     Active Substance: INFLIXIMAB
     Dosage: UNK (INTERVAL OF INFUSION WAS SHORTENED TO SIX WEEKS)

REACTIONS (8)
  - Drug level below therapeutic [Unknown]
  - Drug specific antibody present [Recovering/Resolving]
  - Drug hypersensitivity [Recovering/Resolving]
  - Inappropriate schedule of product administration [Unknown]
  - Iron deficiency anaemia [Unknown]
  - C-reactive protein increased [Recovered/Resolved]
  - Crohn^s disease [Unknown]
  - Off label use [Unknown]
